FAERS Safety Report 9516892 (Version 1)
Quarter: 2013Q3

REPORT INFORMATION
  Report Type: Spontaneous
  Country: US (occurrence: US)
  Receive Date: 20130911
  Receipt Date: 20130911
  Transmission Date: 20140515
  Serious: No
  Sender: FDA-Public Use
  Company Number: US-009507513-1309USA002138

PATIENT
  Age: 68 Year
  Sex: Female

DRUGS (14)
  1. JANUVIA [Suspect]
     Indication: GLYCOSYLATED HAEMOGLOBIN INCREASED
     Dosage: 100 MG, QD
     Route: 048
     Dates: start: 201210
  2. POTASSIUM (UNSPECIFIED) [Concomitant]
     Dosage: 20 MG, UNK
  3. ASPIRIN [Concomitant]
     Dosage: 81 MG, UNK
  4. NEXIUM [Concomitant]
     Dosage: 40 MG, UNK
  5. METOPROLOL SUCCINATE [Concomitant]
     Dosage: 50 MG, UNK
  6. HYDROCHLOROTHIAZIDE (+) TRIAMTERENE [Concomitant]
     Dosage: 37.5/25 MG
  7. LISINOPRIL [Concomitant]
  8. COMBIVENT [Concomitant]
  9. ZOCOR [Concomitant]
     Dosage: 80 MG, UNK
  10. DIPHENHYDRAMINE HYDROCHLORIDE [Concomitant]
     Dosage: 25 MG, UNK
  11. BUSPIRONE HYDROCHLORIDE [Concomitant]
  12. AMLODIPINE [Concomitant]
     Dosage: 10 MG, UNK
  13. SYNTHROID [Concomitant]
     Dosage: 137 MG, UNK
  14. CITALOPRAM HYDROBROMIDE [Concomitant]
     Dosage: 40 MG, UNK

REACTIONS (3)
  - Blood creatinine increased [Recovering/Resolving]
  - Blood creatinine increased [Recovering/Resolving]
  - Blood creatinine increased [Recovering/Resolving]
